FAERS Safety Report 5413812-2 (Version None)
Quarter: 2007Q3

REPORT INFORMATION
  Report Type: 
  Country: None (occurrence: None)
  Receive Date: 20070814
  Receipt Date: 20060718
  Transmission Date: 20080115
  Serious: No
  Sender: FDA-Public Use
  Company Number: US-BRISTOL-MYERS SQUIBB COMPANY-13446091

PATIENT
  Age: 53 Year
  Sex: Male
  Weight: 83 kg

DRUGS (6)
  1. REYATAZ [Suspect]
     Indication: HIV INFECTION
     Dates: start: 20040901
  2. EMTRIVA [Concomitant]
  3. INVIRASE [Concomitant]
  4. TOPROL-XL [Concomitant]
  5. TRIAMTERENE [Concomitant]
  6. LISINOPRIL [Concomitant]

REACTIONS (2)
  - BLOOD BILIRUBIN INCREASED [None]
  - JAUNDICE [None]
